FAERS Safety Report 5637615-9 (Version None)
Quarter: 2008Q1

REPORT INFORMATION
  Report Type: 
  Country: None (occurrence: None)
  Receive Date: 20080219
  Receipt Date: 20080206
  Transmission Date: 20080703
  Serious: Yes (Other)
  Sender: FDA-Public Use
  Company Number: 14011027

PATIENT
  Age: 24 Year
  Sex: Female

DRUGS (1)
  1. EMSAM TRANSDERMAL SYSTEM 6 MG/24 H [Suspect]
     Dosage: TD
     Route: 062
     Dates: start: 20071101

REACTIONS (1)
  - PAPILLOEDEMA [None]
